FAERS Safety Report 14768139 (Version 1)
Quarter: 2018Q2

REPORT INFORMATION
  Report Type: Spontaneous
  Country: US (occurrence: US)
  Receive Date: 20180410
  Receipt Date: 20180410
  Transmission Date: 20180711
  Serious: Yes (Disabling)
  Sender: FDA-Public Use
  Company Number: None

PATIENT
  Age: 58 Week
  Sex: Female
  Weight: 63.05 kg

DRUGS (4)
  1. CITALOPRAM [Suspect]
     Active Substance: CITALOPRAM HYDROBROMIDE
  2. SYNTHRND [Concomitant]
  3. DOXEPIN [Suspect]
     Active Substance: DOXEPIN
  4. ATORATIN [Concomitant]
     Dosage: ?          QUANTITY:20 MG MILLIGRAM(S);?

REACTIONS (5)
  - Dehydration [None]
  - Myocardial infarction [None]
  - Anger [None]
  - Irritability [None]
  - Cerebrovascular accident [None]

NARRATIVE: CASE EVENT DATE: 20180313
